FAERS Safety Report 6258496-9 (Version None)
Quarter: 2009Q3

REPORT INFORMATION
  Report Type: 
  Country: None (occurrence: None)
  Receive Date: 20090707
  Receipt Date: 20090706
  Transmission Date: 20100115
  Serious: Yes (Hospitalization)
  Sender: FDA-Public Use
  Company Number: FR-PFIZER INC-2009204951

PATIENT
  Age: 73 Year

DRUGS (11)
  1. ALDACTONE [Suspect]
     Indication: HYPERTENSION
     Dosage: 50 MG, 1X/DAY
     Route: 048
     Dates: end: 20090320
  2. TRIATEC [Interacting]
     Indication: HYPERTENSION
     Dosage: 10 MG, 1X/DAY
     Dates: end: 20090324
  3. HYDROCHLOROTHIAZIDE/OLMESARTAN MEDOXOMIL [Interacting]
     Indication: HYPERTENSION
     Dosage: 20 MG, 1X/DAY
     Route: 048
  4. BYETTA [Interacting]
     Indication: DIABETES MELLITUS
     Dosage: 10 KIU, 2X/DAY
     Route: 058
     Dates: start: 20081001, end: 20090320
  5. FLECAINIDE ACETATE [Concomitant]
  6. CORDARONE [Concomitant]
  7. PREVISCAN [Concomitant]
  8. GLYBURIDE [Concomitant]
     Dosage: 5 MG, UNK
  9. GLUCOPHAGE [Concomitant]
     Dosage: 1000 MG, UNK
  10. PRAZOSIN HCL [Concomitant]
     Dosage: 5 MG, UNK
  11. CHRONADALATE [Concomitant]

REACTIONS (3)
  - DRUG INTERACTION [None]
  - HYPERKALAEMIA [None]
  - RENAL FAILURE [None]
